FAERS Safety Report 6074528-5 (Version None)
Quarter: 2009Q1

REPORT INFORMATION
  Report Type: 
  Country: None (occurrence: None)
  Receive Date: 20090206
  Receipt Date: 20090123
  Transmission Date: 20090719
  Serious: Yes (Hospitalization)
  Sender: FDA-Public Use
  Company Number: A-CH2009-23600

PATIENT
  Age: 73 Year
  Sex: Male

DRUGS (4)
  1. TRACLEER [Suspect]
     Indication: PULMONARY ARTERIAL HYPERTENSION
     Dosage: ORAL
     Route: 048
     Dates: start: 20081230
  2. REMODULIN(TREPROSTINIL) [Suspect]
     Dosage: SUBCUTANEOUS
     Route: 058
     Dates: start: 20090101
  3. FLOLAN [Concomitant]
  4. REVATIO [Concomitant]

REACTIONS (2)
  - PAIN [None]
  - SCROTAL OEDEMA [None]
